FAERS Safety Report 25459613 (Version 1)
Quarter: 2025Q2

REPORT INFORMATION
  Report Type: Spontaneous
  Country: GB (occurrence: GB)
  Receive Date: 20250620
  Receipt Date: 20250620
  Transmission Date: 20250717
  Serious: Yes (Other)
  Sender: TEVA
  Company Number: None

PATIENT
  Age: 37 Year
  Sex: Female

DRUGS (1)
  1. DOXYCYCLINE [Suspect]
     Active Substance: DOXYCYCLINE
     Indication: Product used for unknown indication
     Route: 065
     Dates: start: 20250530, end: 20250531

REACTIONS (5)
  - Lip swelling [Recovered/Resolved]
  - Lip blister [Recovered/Resolved with Sequelae]
  - Pharyngeal swelling [Recovered/Resolved]
  - Medication error [Unknown]
  - Oral mucosal blistering [Recovered/Resolved with Sequelae]

NARRATIVE: CASE EVENT DATE: 20250531
